FAERS Safety Report 20919589 (Version 1)
Quarter: 2022Q2

REPORT INFORMATION
  Report Type: Spontaneous
  Country: US (occurrence: None)
  Receive Date: 20220603
  Receipt Date: 20220603
  Transmission Date: 20220721
  Serious: Yes (Hospitalization)
  Sender: FDA-Public Use
  Company Number: None

PATIENT
  Age: 82 Year
  Sex: Female
  Weight: 66.68 kg

DRUGS (15)
  1. FULVESTRANT [Suspect]
     Active Substance: FULVESTRANT
     Indication: Breast cancer female
     Dosage: FREQUENCY : MONTHLY;?
     Route: 030
  2. PIQRAY [Suspect]
     Active Substance: ALPELISIB
     Indication: Breast cancer female
     Dosage: FREQUENCY : DAILY;?
     Route: 048
  3. LEVOTHYROXINE SODIUM [Concomitant]
  4. HYDROCHLOROTHIAZIDE\LOSARTAN POTASSIUM [Concomitant]
     Active Substance: HYDROCHLOROTHIAZIDE\LOSARTAN POTASSIUM
  5. ATORVASTATIN CALCIUM [Concomitant]
  6. SERTRALINE HCL [Concomitant]
  7. ALENDRONATE SODIUM [Concomitant]
  8. MULTI VITAMIN DAILY [Concomitant]
  9. CALCIUM 1000 + D [Concomitant]
  10. VITAMIN D3 [Concomitant]
     Active Substance: CHOLECALCIFEROL
  11. ADVIL [Concomitant]
  12. ALLEGRA [Concomitant]
  13. GINKOBA [Concomitant]
  14. AMLODIPINE BESYLATE [Concomitant]
  15. DICLOFENAC SODIUM [Concomitant]

REACTIONS (1)
  - Hospitalisation [None]
